FAERS Safety Report 8406993-X (Version None)
Quarter: 2012Q2

REPORT INFORMATION
  Report Type: 
  Country: None (occurrence: None)
  Receive Date: 20120604
  Receipt Date: 20120530
  Transmission Date: 20120825
  Serious: Yes (Hospitalization, Other)
  Sender: FDA-Public Use
  Company Number: US-PFIZER INC-2012046377

PATIENT
  Sex: Female
  Weight: 56.689 kg

DRUGS (4)
  1. NEURONTIN [Suspect]
     Indication: NERVE INJURY
  2. NITROFURANTOIN [Concomitant]
     Indication: CATHETER PLACEMENT
     Dosage: 100 MG, DAILY
  3. NEURONTIN [Suspect]
     Indication: NEUROPATHY PERIPHERAL
     Dosage: 600 MG, 3X/DAY
     Dates: start: 20110101
  4. NITROFURANTOIN [Concomitant]
     Indication: PROPHYLAXIS URINARY TRACT INFECTION

REACTIONS (2)
  - TOE AMPUTATION [None]
  - VISION BLURRED [None]
